FAERS Safety Report 21866965 (Version 3)
Quarter: 2023Q1

REPORT INFORMATION
  Report Type: Report from Study
  Country: US (occurrence: US)
  Receive Date: 20230116
  Receipt Date: 20230214
  Transmission Date: 20230418
  Serious: Yes (Hospitalization, Other)
  Sender: FDA-Public Use
  Company Number: US-HBP-2021US023950

PATIENT
  Age: 68 Year
  Sex: Male

DRUGS (24)
  1. VALCHLOR [Suspect]
     Active Substance: MECHLORETHAMINE
     Indication: Cutaneous T-cell lymphoma
     Dosage: THIN FILM, QD
     Route: 061
     Dates: start: 2021, end: 20211019
  2. VALCHLOR [Suspect]
     Active Substance: MECHLORETHAMINE
     Dosage: UNK,QD
     Route: 061
     Dates: start: 2021, end: 202212
  3. FUROSEMIDE [Suspect]
     Active Substance: FUROSEMIDE
     Dosage: 40MG, UNKNOWN
  4. FUROSEMIDE [Suspect]
     Active Substance: FUROSEMIDE
     Dosage: 20MG, UNKNOWN
     Route: 048
  5. CALCIUM [Suspect]
     Active Substance: CALCIUM
     Dosage: UNK, UNKNOWN
  6. TRIAMCINOLONE [Suspect]
     Active Substance: TRIAMCINOLONE
     Dosage: UNK, TWO TO THREE TIMES A DAY
  7. CLOBAZAM [Concomitant]
     Active Substance: CLOBAZAM
     Dosage: 20 MILLIGRAM, UNKNOWN
  8. METHOTREXATE [Concomitant]
     Active Substance: METHOTREXATE
     Dosage: 2.5 MILLIGRAM, UNKNOWN
  9. LAMICTAL [Concomitant]
     Active Substance: LAMOTRIGINE
     Dosage: 300 MILLIGRAM, QD
  10. TAMSULOSIN HYDROCHLORIDE [Concomitant]
     Active Substance: TAMSULOSIN HYDROCHLORIDE
     Dosage: 0.4 MILLIGRAM, UNKNOWN
  11. METOPROLOL SUCCINATE [Concomitant]
     Active Substance: METOPROLOL SUCCINATE
     Dosage: UNK, UNKNOWN
  12. OLODATEROL HYDROCHLORIDE\TIOTROPIUM BROMIDE MONOHYDRATE [Concomitant]
     Active Substance: OLODATEROL HYDROCHLORIDE\TIOTROPIUM BROMIDE MONOHYDRATE
     Dosage: UNK, UNKNOWN
  13. VITAMIN D3 [Concomitant]
     Active Substance: CHOLECALCIFEROL
     Dosage: 10MCG, UNKNOWN
  14. VITAMIN C [Concomitant]
     Active Substance: ASCORBIC ACID
     Dosage: 1000 MG, UNKNOWN
  15. VITAMIN B COMPLEX [Concomitant]
     Active Substance: CYANOCOBALAMIN\DEXPANTHENOL\NIACINAMIDE\PYRIDOXINE HYDROCHLORIDE\RIBOFLAVIN 5^-PHOSPHATE SODIUM\THIA
     Dosage: UNK, UNKNOWN
  16. OCUVITE EYE PLUS MULTI [Concomitant]
     Dosage: UNK, UNKNOWN
  17. VITAMIN B12 [Concomitant]
     Active Substance: CYANOCOBALAMIN
     Dosage: 2500 MCG, UNKNOWN
  18. KEPPRA [Concomitant]
     Active Substance: LEVETIRACETAM
     Dosage: 500MG, UNKNOWN
  19. WARFARIN SODIUM [Concomitant]
     Active Substance: WARFARIN SODIUM
     Dosage: 2MG, UNKNOWN
     Route: 048
  20. FOLIC ACID [Concomitant]
     Active Substance: FOLIC ACID
     Dosage: 1MG, UNKNOWN
  21. VITAMINS NOS [Concomitant]
     Active Substance: VITAMINS
     Dosage: UNK, UNKNOWN
  22. TORSEMIDE [Concomitant]
     Active Substance: TORSEMIDE
     Dosage: UNK, UNKNOWN
  23. KEPPRA [Concomitant]
     Active Substance: LEVETIRACETAM
     Dosage: UNK, UNKNOWN
  24. STIOLTO RESPIMAT [Concomitant]
     Active Substance: OLODATEROL HYDROCHLORIDE\TIOTROPIUM BROMIDE MONOHYDRATE
     Dosage: UNK, UNKNOWN

REACTIONS (33)
  - Application site swelling [Unknown]
  - Application site irritation [Unknown]
  - Cardiac operation [Unknown]
  - Seizure [Unknown]
  - Neuropathy peripheral [Unknown]
  - Blood calcium increased [Unknown]
  - Blood creatine increased [Unknown]
  - Urinary retention [Unknown]
  - Plasma cell myeloma [Unknown]
  - Anaemia [Unknown]
  - COVID-19 [Unknown]
  - Dyspnoea [Unknown]
  - Skin atrophy [Unknown]
  - Application site laceration [Unknown]
  - Application site erosion [Recovering/Resolving]
  - Application site discharge [Recovering/Resolving]
  - Application site odour [Recovering/Resolving]
  - Application site pain [Unknown]
  - Application site scab [Unknown]
  - Ill-defined disorder [Unknown]
  - Catheter placement [Unknown]
  - Gingival bleeding [Unknown]
  - Blood disorder [Unknown]
  - Intentional dose omission [Unknown]
  - Blister rupture [Not Recovered/Not Resolved]
  - Peripheral swelling [Not Recovered/Not Resolved]
  - Fall [Recovered/Resolved]
  - Exposure via skin contact [Unknown]
  - Accidental exposure to product [Unknown]
  - Fluid retention [Unknown]
  - Blister [Not Recovered/Not Resolved]
  - Dermatitis [Not Recovered/Not Resolved]
  - Erythema [Not Recovered/Not Resolved]

NARRATIVE: CASE EVENT DATE: 20211019
